FAERS Safety Report 10229471 (Version 1)
Quarter: 2014Q2

REPORT INFORMATION
  Report Type: Report from Study
  Country: US (occurrence: US)
  Receive Date: 20140611
  Receipt Date: 20140611
  Transmission Date: 20141212
  Serious: Yes (Other)
  Sender: FDA-Public Use
  Company Number: US-ASTRAZENECA-2014SE38345

PATIENT
  Age: 56 Year
  Sex: Female
  Weight: 69.9 kg

DRUGS (6)
  1. NEXIUM [Suspect]
     Indication: GASTROOESOPHAGEAL REFLUX DISEASE
     Dosage: 40MG BID PRN
     Route: 048
     Dates: start: 2006
  2. AMITRIPTYLINE [Suspect]
     Indication: SLEEP DISORDER
     Route: 048
     Dates: start: 201312
  3. MICARDIS [Concomitant]
     Indication: BLOOD PRESSURE
     Route: 048
     Dates: start: 2014
  4. CARVEDILOL [Concomitant]
     Route: 048
     Dates: start: 2006
  5. BACLOFEN [Concomitant]
     Indication: MUSCLE RELAXANT THERAPY
     Dosage: 20MG PRN Q8H
     Route: 048
     Dates: start: 201312
  6. OXYCODONE [Concomitant]
     Indication: PAIN
     Dosage: 10MG Q6H PRN
     Route: 048
     Dates: start: 2012

REACTIONS (15)
  - Intervertebral disc protrusion [Not Recovered/Not Resolved]
  - Oesophageal pain [Not Recovered/Not Resolved]
  - Dysphagia [Not Recovered/Not Resolved]
  - Gastrooesophageal reflux disease [Not Recovered/Not Resolved]
  - Hypertension [Unknown]
  - Sleep disorder [Not Recovered/Not Resolved]
  - Body height decreased [Not Recovered/Not Resolved]
  - Stress [Not Recovered/Not Resolved]
  - Arthritis [Not Recovered/Not Resolved]
  - Abdominal discomfort [Not Recovered/Not Resolved]
  - Malaise [Not Recovered/Not Resolved]
  - Somnolence [Not Recovered/Not Resolved]
  - Arthralgia [Not Recovered/Not Resolved]
  - Off label use [Not Recovered/Not Resolved]
  - Drug dose omission [Not Recovered/Not Resolved]
